FAERS Safety Report 11889603 (Version 1)
Quarter: 2016Q1

REPORT INFORMATION
  Report Type: Spontaneous
  Country: CN (occurrence: CN)
  Receive Date: 20160105
  Receipt Date: 20160105
  Transmission Date: 20160526
  Serious: Yes (Death)
  Sender: FDA-Public Use
  Company Number: CN-ASTRAZENECA-2015SF23431

PATIENT
  Age: 80 Year
  Sex: Female

DRUGS (4)
  1. HERBAL NOS [Concomitant]
     Active Substance: HERBALS
     Dosage: FOUR TABLETS THREE TIMES A DAY
  2. HERBAL NOS [Concomitant]
     Active Substance: HERBALS
     Dosage: SIX CAPSULES TWO TIMES A DAY
  3. ENEMA NOS [Concomitant]
  4. IRESSA [Suspect]
     Active Substance: GEFITINIB
     Indication: LUNG NEOPLASM MALIGNANT
     Route: 048
     Dates: start: 20151125

REACTIONS (3)
  - Death [Fatal]
  - Decreased appetite [Unknown]
  - Constipation [Unknown]
